FAERS Safety Report 7496172-5 (Version None)
Quarter: 2011Q2

REPORT INFORMATION
  Report Type: 
  Country: None (occurrence: None)
  Receive Date: 20110523
  Receipt Date: 20110511
  Transmission Date: 20111010
  Serious: Yes (Hospitalization)
  Sender: FDA-Public Use
  Company Number: PHHY2011FR42355

PATIENT
  Sex: Female

DRUGS (1)
  1. GYNERGENE CAFEINE [Suspect]
     Indication: MIGRAINE
     Dosage: 1 DOSAGE 2 DF EVERY DAY
     Route: 048
     Dates: start: 20110226, end: 20110226

REACTIONS (8)
  - ERGOT POISONING [None]
  - MUSCLE SPASMS [None]
  - MOTOR DYSFUNCTION [None]
  - CYANOSIS [None]
  - FEELING HOT [None]
  - LIVIDITY [None]
  - PAIN IN EXTREMITY [None]
  - HYPOAESTHESIA [None]
